FAERS Safety Report 10426323 (Version 1)
Quarter: 2014Q3

REPORT INFORMATION
  Report Type: Spontaneous
  Country: US (occurrence: None)
  Receive Date: 20140902
  Receipt Date: 20140902
  Transmission Date: 20150326
  Serious: No
  Sender: FDA-Public Use
  Company Number: None

PATIENT
  Age: 74 Year
  Sex: Female
  Weight: 58.97 kg

DRUGS (8)
  1. VITAMIN C [Concomitant]
     Active Substance: ASCORBIC ACID
  2. VITAMIN D [Concomitant]
     Active Substance: CHOLECALCIFEROL
  3. LISINOPRIL LUPIN PHRM [Suspect]
     Active Substance: LISINOPRIL
     Indication: HYPERTENSION
     Dosage: 10 MG, 1/2 TABLET TWICE DAILY, TWICE DAILY, BY MOUTH
     Route: 048
     Dates: start: 201403, end: 20140410
  4. CARVEDILOL. [Concomitant]
     Active Substance: CARVEDILOL
  5. CALCIUM MAGNESSIUM [Concomitant]
  6. PROBIOTIC [Concomitant]
     Active Substance: PROBIOTICS NOS
  7. ARMOUR THYROID [Concomitant]
     Active Substance: THYROID, PORCINE\THYROID, UNSPECIFIED
  8. FISH OIL [Concomitant]
     Active Substance: FISH OIL

REACTIONS (7)
  - Periorbital oedema [None]
  - Headache [None]
  - Confusional state [None]
  - Madarosis [None]
  - Oesophageal pain [None]
  - Spider vein [None]
  - Alopecia [None]
